FAERS Safety Report 24990868 (Version 1)
Quarter: 2025Q1

REPORT INFORMATION
  Report Type: Report from Study
  Country: US (occurrence: None)
  Receive Date: 20250220
  Receipt Date: 20250220
  Transmission Date: 20250409
  Serious: Yes (Hospitalization, Other)
  Sender: ALEXION PHARMACEUTICALS
  Company Number: US-AstraZeneca-2014SE73913

PATIENT
  Age: 80 Year
  Weight: 58.513 kg

DRUGS (5)
  1. NEXIUM [Suspect]
     Active Substance: ESOMEPRAZOLE MAGNESIUM
     Indication: Gastrooesophageal reflux disease
     Dosage: 40 MILLIGRAM, QD
  2. CRESTOR [Suspect]
     Active Substance: ROSUVASTATIN CALCIUM
     Indication: Blood cholesterol abnormal
     Dosage: 20 MILLIGRAM, QD
  3. ATENOLOL [Suspect]
     Active Substance: ATENOLOL
     Indication: Stent placement
  4. ATENOLOL [Suspect]
     Active Substance: ATENOLOL
     Indication: Myocardial infarction
  5. LOSARTAN [Concomitant]
     Active Substance: LOSARTAN
     Indication: Blood pressure abnormal
     Dosage: 100 MILLIGRAM, QD

REACTIONS (7)
  - Lower limb fracture [Recovering/Resolving]
  - Myocardial infarction [Unknown]
  - Gastrointestinal disorder [Recovered/Resolved]
  - Hypoacusis [Unknown]
  - Memory impairment [Unknown]
  - Therapy cessation [Unknown]
  - Blood cholesterol [Unknown]
